FAERS Safety Report 8957577 (Version 3)
Quarter: 2013Q1

REPORT INFORMATION
  Report Type: Report from Study
  Country: IN (occurrence: IN)
  Receive Date: 20121211
  Receipt Date: 20130207
  Transmission Date: 20140127
  Serious: Yes (Hospitalization, Other)
  Sender: FDA-Public Use
  Company Number: IN-ASTRAZENECA-2012SE90756

PATIENT
  Age: 20858 Day
  Sex: Female

DRUGS (5)
  1. AZD8931 [Suspect]
     Indication: BREAST CANCER
     Route: 048
     Dates: start: 20120123, end: 20121117
  2. ANASTROZOLE [Suspect]
     Indication: BREAST CANCER
     Route: 048
     Dates: start: 20120124, end: 20121205
  3. ZOLEDRONIC ACID [Concomitant]
     Indication: METASTASES TO BONE
     Route: 051
     Dates: start: 20120117
  4. BECOSULE [Concomitant]
     Indication: STOMATITIS
     Route: 048
     Dates: start: 20120409
  5. TAMOXIFEN [Concomitant]
     Indication: BREAST CANCER
     Route: 048

REACTIONS (2)
  - Nausea [Recovered/Resolved]
  - Vomiting [Recovered/Resolved]
